FAERS Safety Report 9850464 (Version 1)
Quarter: 2014Q1

REPORT INFORMATION
  Report Type: Spontaneous
  Country: US (occurrence: None)
  Receive Date: 20140127
  Receipt Date: 20140127
  Transmission Date: 20141002
  Serious: Yes (Disabling)
  Sender: FDA-Public Use
  Company Number: None

PATIENT
  Age: 84 Year
  Sex: Female
  Weight: 47.63 kg

DRUGS (1)
  1. PROLIA [Suspect]
     Indication: OSTEOPOROSIS
     Dates: start: 20111227

REACTIONS (4)
  - Cellulitis [None]
  - Subcutaneous abscess [None]
  - Sinusitis [None]
  - Osteonecrosis of jaw [None]
